FAERS Safety Report 14323494 (Version 4)
Quarter: 2018Q1

REPORT INFORMATION
  Report Type: Spontaneous
  Country: RO (occurrence: RO)
  Receive Date: 20171226
  Receipt Date: 20180221
  Transmission Date: 20180509
  Serious: Yes (Life-Threatening, Hospitalization, Other)
  Sender: FDA-Public Use
  Company Number: RO-DRREDDYS-USA/ROM/17/0095273

PATIENT
  Age: 44 Year
  Sex: Male

DRUGS (2)
  1. ACETYLSALICYLIC ACID [Suspect]
     Active Substance: ASPIRIN
     Indication: ANTIPLATELET THERAPY
     Dosage: FOR APPROXIMATELY 2 WEEKS
     Route: 065
     Dates: start: 201701, end: 201702
  2. CLOPIDOGREL [Suspect]
     Active Substance: CLOPIDOGREL BISULFATE
     Indication: ANTIPLATELET THERAPY
     Route: 065
     Dates: start: 2015, end: 2017

REACTIONS (9)
  - Hemiplegia [Unknown]
  - Abulia [Unknown]
  - Hypoaesthesia [Unknown]
  - Dysphonia [Unknown]
  - Transient ischaemic attack [Unknown]
  - Aphasia [Unknown]
  - Dizziness [Unknown]
  - Drug ineffective [Unknown]
  - Hemiparesis [Unknown]

NARRATIVE: CASE EVENT DATE: 201701
